FAERS Safety Report 9386432 (Version 6)
Quarter: 2014Q1

REPORT INFORMATION
  Report Type: Spontaneous
  Country: JP (occurrence: JP)
  Receive Date: 20130708
  Receipt Date: 20140306
  Transmission Date: 20141002
  Serious: Yes (Hospitalization)
  Sender: FDA-Public Use
  Company Number: JP-ACTELION-A-CH2013-85236

PATIENT
  Age: 26 Year
  Sex: Male

DRUGS (11)
  1. BRAZAVES [Suspect]
     Indication: NIEMANN-PICK DISEASE
     Dosage: 200 MG, TID
     Route: 048
     Dates: start: 20130603, end: 20130702
  2. BRAZAVES [Suspect]
     Dosage: 400 MG, QD
     Route: 048
     Dates: start: 20130527, end: 20130602
  3. BRAZAVES [Suspect]
     Dosage: 100 MG, BID
     Route: 048
     Dates: start: 20130522, end: 20130526
  4. BRAZAVES [Suspect]
     Dosage: 100 MG, TID
     Route: 048
     Dates: start: 20130703, end: 20130808
  5. BRAZAVES [Suspect]
     Dosage: 200 MG, BID
     Route: 048
     Dates: end: 20140128
  6. BRAZAVES [Suspect]
     Dosage: 100 MG, TID
     Route: 048
     Dates: start: 20140129, end: 20140201
  7. MESALAZINE [Suspect]
     Dosage: 3000 MG, UNK
     Route: 048
     Dates: start: 2003
  8. SODIUM VALPROATE [Suspect]
     Dosage: 480 MG, UNK
     Route: 048
     Dates: start: 2006, end: 20130916
  9. RISPERIDONE [Concomitant]
  10. TRIHEXYPHENIDYL HYDROCHLORIDE [Concomitant]
  11. HYDROXYZINE PAMOATE [Concomitant]

REACTIONS (8)
  - Intestinal obstruction [Recovered/Resolved]
  - Pancytopenia [Recovering/Resolving]
  - Pneumonia aspiration [Recovering/Resolving]
  - Ileus [Recovering/Resolving]
  - White blood cell count decreased [Unknown]
  - Diarrhoea [Recovered/Resolved]
  - Abdominal distension [Recovering/Resolving]
  - Vomiting [Recovering/Resolving]
